FAERS Safety Report 5646009-1 (Version None)
Quarter: 2008Q1

REPORT INFORMATION
  Report Type: 
  Country: None (occurrence: None)
  Receive Date: 20080227
  Receipt Date: 20080219
  Transmission Date: 20080703
  Serious: Yes (Hospitalization, Other)
  Sender: FDA-Public Use
  Company Number: 2007SP023902

PATIENT
  Age: 47 Year
  Sex: Male
  Weight: 95.709 kg

DRUGS (3)
  1. PEG-INTRON [Suspect]
     Indication: HEPATITIS C
     Dosage: 140 MCG; SC
     Route: 058
     Dates: start: 20070518, end: 20071026
  2. REBETOL [Suspect]
     Indication: HEPATITIS C
     Dosage: 600 MG;BID;PO
     Route: 048
     Dates: start: 20070518, end: 20071026
  3. METHADONE HCL [Concomitant]

REACTIONS (4)
  - BLISTER [None]
  - BODY TEMPERATURE INCREASED [None]
  - DEPRESSION [None]
  - PORPHYRIA NON-ACUTE [None]
